FAERS Safety Report 6982168-6 (Version None)
Quarter: 2010Q3

REPORT INFORMATION
  Report Type: 
  Country: None (occurrence: None)
  Receive Date: 20100914
  Receipt Date: 20091124
  Transmission Date: 20110219
  Serious: No
  Sender: FDA-Public Use
  Company Number: US-PFIZER INC-2009303951

PATIENT
  Sex: Female
  Weight: 67.1 kg

DRUGS (3)
  1. LYRICA [Suspect]
     Indication: TRIGEMINAL NEURALGIA
     Dosage: 50 MG, 1X/DAY
     Dates: start: 20091119
  2. ACETYLSALICYLIC ACID [Concomitant]
     Dosage: UNK
  3. XANAX [Concomitant]
     Indication: SLEEP DISORDER
     Dosage: UNK

REACTIONS (2)
  - CONSTIPATION [None]
  - DIZZINESS [None]
